FAERS Safety Report 5210516-6 (Version None)
Quarter: 2006Q4

REPORT INFORMATION
  Report Type: 
  Country: None (occurrence: None)
  Receive Date: 20061106
  Receipt Date: 20060828
  Transmission Date: 20070319
  Serious: Yes (Other)
  Sender: FDA-Public Use
  Company Number: US-JNJFOC-20060901289

PATIENT
  Age: 47 Year
  Sex: Female
  Weight: 97.0698 kg

DRUGS (1)
  1. MOTRIN [Suspect]
     Indication: ARTHRITIS
     Dosage: 800MG,TID,EVERY 2-3 DAYS
     Dates: start: 19990101, end: 20060601

REACTIONS (1)
  - HAEMATOCHEZIA [None]
